FAERS Safety Report 5960081-0 (Version None)
Quarter: 2008Q4

REPORT INFORMATION
  Report Type: 
  Country: None (occurrence: None)
  Receive Date: 20081119
  Receipt Date: 20081119
  Transmission Date: 20090506
  Serious: Yes (Life-Threatening, Hospitalization)
  Sender: FDA-Public Use
  Company Number: None

PATIENT
  Age: 57 Year
  Sex: Female
  Weight: 141 kg

DRUGS (9)
  1. ENOXAPARIN SODIUM [Suspect]
     Indication: PULMONARY EMBOLISM
     Dosage: 150 MG SQ BID
     Route: 058
     Dates: start: 20081002, end: 20081012
  2. NEURONTIN [Concomitant]
  3. VIT C [Concomitant]
  4. PROZAC [Concomitant]
  5. CEFEPIME [Concomitant]
  6. LEVOPHED [Concomitant]
  7. MIDODRINE [Concomitant]
  8. HYDROCORTISONE [Concomitant]
  9. ALBUTEROL/ATROVENT [Concomitant]

REACTIONS (2)
  - ANTI FACTOR X ANTIBODY POSITIVE [None]
  - BLOOD CREATININE INCREASED [None]
